FAERS Safety Report 23368951 (Version 2)
Quarter: 2024Q4

REPORT INFORMATION
  Report Type: Spontaneous
  Country: CA (occurrence: CA)
  Receive Date: 20240105
  Receipt Date: 20241203
  Transmission Date: 20250114
  Serious: Yes (Other)
  Sender: CELLTRION
  Company Number: CA-CELLTRION INC.-2024CA000071

PATIENT

DRUGS (1)
  1. RITUXIMAB [Suspect]
     Active Substance: RITUXIMAB
     Indication: Granulomatosis with polyangiitis
     Dosage: 500 MILLIGRAM
     Route: 042

REACTIONS (5)
  - Secretion discharge [Recovered/Resolved]
  - Lung disorder [Recovered/Resolved]
  - Bladder cancer [Recovered/Resolved]
  - Renal disorder [Recovered/Resolved]
  - Immunosuppression [Recovered/Resolved]
